FAERS Safety Report 15170223 (Version 1)
Quarter: 2018Q3

REPORT INFORMATION
  Report Type: Spontaneous
  Country: US (occurrence: US)
  Receive Date: 20180621
  Receipt Date: 20180621
  Transmission Date: 20181010
  Serious: Yes (Death, Hospitalization)
  Sender: FDA-Public Use
  Company Number: None

PATIENT
  Age: 80 Year
  Sex: Male
  Weight: 84.3 kg

DRUGS (2)
  1. ETOPOSIDE (VP?16) [Suspect]
     Active Substance: ETOPOSIDE
     Dates: end: 20180509
  2. CARBOPLATIN. [Suspect]
     Active Substance: CARBOPLATIN
     Dates: end: 20180507

REACTIONS (4)
  - Respiratory failure [None]
  - Pneumonia aspiration [None]
  - Cardiac failure congestive [None]
  - Rectal haemorrhage [None]

NARRATIVE: CASE EVENT DATE: 20180608
